FAERS Safety Report 4454169-3 (Version None)
Quarter: 2004Q3

REPORT INFORMATION
  Report Type: 
  Country: None (occurrence: None)
  Receive Date: 20040826
  Receipt Date: 20040503
  Transmission Date: 20050211
  Serious: Yes (Disabling)
  Sender: FDA-Public Use
  Company Number: WAES 0405USA00149

PATIENT
  Age: 48 Year
  Sex: Male
  Weight: 144.2439 kg

DRUGS (4)
  1. ZETIA [Suspect]
     Indication: BLOOD CHOLESTEROL INCREASED
     Dosage: 10 MG/DAILY/PO; 10 MG/QOD/PO
     Route: 048
     Dates: start: 20040201, end: 20040201
  2. ZETIA [Suspect]
     Indication: BLOOD CHOLESTEROL INCREASED
     Dosage: 10 MG/DAILY/PO; 10 MG/QOD/PO
     Route: 048
     Dates: start: 20030924, end: 20040205
  3. ACTOS [Concomitant]
  4. DYAZIDE [Concomitant]

REACTIONS (1)
  - DIARRHOEA [None]
